FAERS Safety Report 25687103 (Version 1)
Quarter: 2025Q3

REPORT INFORMATION
  Report Type: Spontaneous
  Country: MX (occurrence: MX)
  Receive Date: 20250816
  Receipt Date: 20250816
  Transmission Date: 20251021
  Serious: Yes (Death, Life-Threatening, Hospitalization)
  Sender: ACCORD
  Company Number: MX-MLMSERVICE-20250728-PI593174-00306-1

PATIENT
  Age: 50 Year
  Sex: Male

DRUGS (10)
  1. MYCOPHENOLIC ACID [Suspect]
     Active Substance: MYCOPHENOLIC ACID
     Indication: Immunosuppressant drug therapy
     Dates: start: 2023
  2. TACROLIMUS [Suspect]
     Active Substance: TACROLIMUS
     Indication: Immunosuppressant drug therapy
     Dosage: 0.075 MG/KG/DAY
     Dates: start: 2023
  3. PREDNISONE [Suspect]
     Active Substance: PREDNISONE
     Indication: Immunosuppressant drug therapy
     Dates: start: 2023
  4. METHYLPREDNISOLONE [Suspect]
     Active Substance: METHYLPREDNISOLONE
     Indication: Immunosuppressant drug therapy
     Dates: start: 2023
  5. RITUXIMAB [Suspect]
     Active Substance: RITUXIMAB
     Indication: Immunosuppressant drug therapy
     Dates: start: 2023
  6. AMLODIPINE [Concomitant]
     Active Substance: AMLODIPINE BESYLATE
     Indication: Hypertension
  7. INSULIN GLARGINE [Concomitant]
     Active Substance: INSULIN GLARGINE
     Indication: Type 2 diabetes mellitus
  8. TELMISARTAN [Concomitant]
     Active Substance: TELMISARTAN
     Indication: Hypertension
  9. AMLODIPINE [Concomitant]
     Active Substance: AMLODIPINE BESYLATE
     Indication: Hypertension
  10. TELMISARTAN [Concomitant]
     Active Substance: TELMISARTAN
     Indication: Hypertension

REACTIONS (28)
  - Disseminated cryptococcosis [Fatal]
  - Multiple organ dysfunction syndrome [Fatal]
  - Pneumonia [Fatal]
  - Pneumonia staphylococcal [Fatal]
  - Cryptococcosis [Fatal]
  - Cardiac failure [Fatal]
  - Granuloma [Fatal]
  - Granulomatous lymphadenitis [Fatal]
  - Hypovolaemic shock [Fatal]
  - Chronic kidney disease [Fatal]
  - Pneumonia cryptococcal [Fatal]
  - Respiratory distress [Fatal]
  - Upper gastrointestinal haemorrhage [Fatal]
  - Gastric ulcer [Fatal]
  - Atelectasis [Fatal]
  - Pulmonary valve stenosis [Fatal]
  - Pneumonia fungal [Fatal]
  - Enterococcal infection [Fatal]
  - Gastrointestinal disorder [Fatal]
  - Lower gastrointestinal haemorrhage [Fatal]
  - Diverticulitis [Fatal]
  - Proctitis ulcerative [Fatal]
  - Haemorrhoids [Fatal]
  - Trichosporon infection [Fatal]
  - Neurological decompensation [Fatal]
  - Apallic syndrome [Fatal]
  - Drug-induced liver injury [Fatal]
  - Hypogammaglobulinaemia [Fatal]

NARRATIVE: CASE EVENT DATE: 20240101
